FAERS Safety Report 6342106-6 (Version None)
Quarter: 2009Q3

REPORT INFORMATION
  Report Type: 
  Country: None (occurrence: None)
  Receive Date: 20090903
  Receipt Date: 20090903
  Transmission Date: 20100115
  Serious: Yes (Death)
  Sender: FDA-Public Use
  Company Number: None

PATIENT
  Age: 80 Year
  Sex: Male
  Weight: 80.7403 kg

DRUGS (1)
  1. DRONEDARONE HCL [Suspect]
     Indication: ATRIAL FLUTTER
     Dosage: 400MG BID PO, SINGLE DOSE
     Route: 048
     Dates: start: 20090828, end: 20090829

REACTIONS (5)
  - BRADYCARDIA [None]
  - CARDIAC ARREST [None]
  - HYPERHIDROSIS [None]
  - HYPOTENSION [None]
  - NO THERAPEUTIC RESPONSE [None]
